FAERS Safety Report 4375463-0 (Version None)
Quarter: 2004Q2

REPORT INFORMATION
  Report Type: 
  Country: None (occurrence: None)
  Receive Date: 20040607
  Receipt Date: 20040526
  Transmission Date: 20050107
  Serious: Yes (Death)
  Sender: FDA-Public Use
  Company Number: USA-2004-0015353

PATIENT
  Age: 64 Year
  Sex: Male
  Weight: 63 kg

DRUGS (6)
  1. OXYCODONE HCL [Suspect]
  2. DIHYDROCODEINE/CAFFEINE/ACETAMINOPHEN (SIMILAR TO ANDA 88-584)(PARACET [Suspect]
  3. HYDROCODONE BITARTRATE [Suspect]
  4. DILTIAZEM [Suspect]
  5. METOPROLOL(METOPROLOL) [Suspect]
  6. SALICYLIC ACID (SALICYLIC ACID) [Concomitant]

REACTIONS (25)
  - ACCIDENTAL EXPOSURE [None]
  - AGITATION [None]
  - AORTIC ATHEROSCLEROSIS [None]
  - ARTERIOSCLEROSIS [None]
  - BRONCHOPNEUMONIA [None]
  - CARDIAC FAILURE CONGESTIVE [None]
  - CARDIOMEGALY [None]
  - COMA [None]
  - CORONARY ARTERY ATHEROSCLEROSIS [None]
  - DRUG TOXICITY [None]
  - EMPHYSEMA [None]
  - HEPATIC CONGESTION [None]
  - HYPERTENSIVE HEART DISEASE [None]
  - INTERSTITIAL LUNG DISEASE [None]
  - ISCHAEMIC CARDIOMYOPATHY [None]
  - MYOCARDIAL FIBROSIS [None]
  - NEPHROSCLEROSIS [None]
  - OEDEMA PERIPHERAL [None]
  - PITTING OEDEMA [None]
  - PLEURISY [None]
  - PROSTATE CANCER [None]
  - PULMONARY CONGESTION [None]
  - PULMONARY OEDEMA [None]
  - SCAR [None]
  - VENTRICULAR HYPERTROPHY [None]
